FAERS Safety Report 13828354 (Version 2)
Quarter: 2017Q3

REPORT INFORMATION
  Report Type: Spontaneous
  Country: US (occurrence: US)
  Receive Date: 20170803
  Receipt Date: 20170901
  Transmission Date: 20171127
  Serious: No
  Sender: FDA-Public Use
  Company Number: US-PFIZER INC-2017334544

PATIENT
  Age: 77 Year
  Sex: Female
  Weight: 74.84 kg

DRUGS (1)
  1. GABAPENTIN. [Suspect]
     Active Substance: GABAPENTIN
     Indication: PAIN IN EXTREMITY
     Dosage: 600 MG, 2X/DAY
     Route: 048
     Dates: start: 20160817

REACTIONS (1)
  - Drug ineffective for unapproved indication [Unknown]
